FAERS Safety Report 10516274 (Version 1)
Quarter: 2014Q4

REPORT INFORMATION
  Report Type: Spontaneous
  Country: US (occurrence: US)
  Receive Date: 20141014
  Receipt Date: 20141014
  Transmission Date: 20150528
  Serious: Yes (Other)
  Sender: FDA-Public Use
  Company Number: US-JNJCP-30000244330

PATIENT
  Sex: Female
  Weight: 64 kg

DRUGS (1)
  1. JOHNSONS BABY PRODUCTS [Suspect]
     Active Substance: UNSPECIFIED INGREDIENT
     Dosage: GENEROUS AMOUNT, THREE TIMES
     Route: 061
     Dates: end: 20140930

REACTIONS (2)
  - Neoplasm malignant [Not Recovered/Not Resolved]
  - Application site papules [Not Recovered/Not Resolved]
